FAERS Safety Report 8766762 (Version 2)
Quarter: 2012Q4

REPORT INFORMATION
  Report Type: 
  Country: US (occurrence: US)
  Receive Date: 20120904
  Receipt Date: 20120911
  Transmission Date: 20130627
  Serious: Yes (Hospitalization, Other)
  Sender: FDA-Public Use
  Company Number: US-BAYER-2012-089075

PATIENT
  Age: 24 Year
  Sex: Female

DRUGS (17)
  1. YASMIN [Suspect]
     Indication: PREMENSTRUAL SYNDROME
     Dosage: UNK
     Dates: start: 20070606
  2. YAZ [Suspect]
     Indication: PREMENSTRUAL SYNDROME
     Dosage: UNK
     Dates: start: 20070606
  3. OCELLA [Suspect]
     Dosage: UNK
     Dates: start: 20070606
  4. BENZONATATE [Concomitant]
     Dosage: 200 mg, TID
     Route: 048
     Dates: start: 20070526
  5. ZITHROMAX [Concomitant]
     Dosage: 250 mg, UNK
     Dates: start: 20070515
  6. ROBITUSSIN [Concomitant]
     Indication: COUGH
     Dosage: UNK UNK, Q4HR
     Dates: start: 20070515
  7. ROBITUSSIN [Concomitant]
     Indication: NASAL CONGESTION
  8. VICODIN [Concomitant]
     Dosage: 5mg/500mg, one to two Q 4 to 6 H
     Route: 048
     Dates: start: 20070701
  9. CIPROFLOXACIN [Concomitant]
     Dosage: 500 mg, 1 Q 12 H
     Route: 048
     Dates: start: 20070608
  10. CIPROFLOXACIN [Concomitant]
     Dosage: 500 mg, 1 Q 12 H
     Dates: start: 20070701
  11. MORPHINE [Concomitant]
     Dosage: 2 mg, UNK
     Route: 042
     Dates: start: 20070701
  12. RANITIDINE [Concomitant]
     Dosage: 50 mg, UNK
     Route: 042
     Dates: start: 20070701
  13. MAXALT [Concomitant]
     Dosage: UNK
     Dates: start: 20070703
  14. PRILOSEC [Concomitant]
     Dosage: 20 mg, UNK
     Dates: start: 20070703
  15. AMITRIPTYLINE [Concomitant]
     Dosage: 100 mg, UNK
     Dates: start: 20070703
  16. ZYRTEC [Concomitant]
     Dosage: 10 UNK, UNK
     Dates: start: 20070703
  17. SOMA [Concomitant]
     Dosage: 325 mg, UNK
     Dates: start: 20070703

REACTIONS (10)
  - Pulmonary embolism [None]
  - Biliary dyskinesia [None]
  - Deep vein thrombosis [Recovered/Resolved]
  - Pulmonary embolism [Recovered/Resolved]
  - Injury [None]
  - Pain [None]
  - General physical health deterioration [None]
  - Anxiety [None]
  - Pain [None]
  - Emotional distress [None]
